FAERS Safety Report 8220713-3 (Version None)
Quarter: 2012Q1

REPORT INFORMATION
  Report Type: 
  Country: None (occurrence: None)
  Receive Date: 20120320
  Receipt Date: 20120308
  Transmission Date: 20120608
  Serious: Yes (Other)
  Sender: FDA-Public Use
  Company Number: JP-UCBSA-053306

PATIENT

DRUGS (1)
  1. XYZAL [Suspect]
     Route: 048
     Dates: start: 20110801, end: 20120201

REACTIONS (1)
  - HEPATIC ENZYME INCREASED [None]
